FAERS Safety Report 4810522-7 (Version None)
Quarter: 2005Q4

REPORT INFORMATION
  Report Type: 
  Country: None (occurrence: None)
  Receive Date: 20051024
  Receipt Date: 20051012
  Transmission Date: 20060501
  Serious: Yes (Death)
  Sender: FDA-Public Use
  Company Number: USA-2005-0021571

PATIENT
  Age: 74 Year

DRUGS (1)
  1. THEOPHYLLINE [Suspect]
     Indication: DRUG USE FOR UNKNOWN INDICATION
     Dosage: ORAL
     Route: 048

REACTIONS (2)
  - DRUG LEVEL ABOVE THERAPEUTIC [None]
  - INTENTIONAL DRUG MISUSE [None]
